FAERS Safety Report 5191878-5 (Version None)
Quarter: 2006Q4

REPORT INFORMATION
  Report Type: 
  Country: None (occurrence: None)
  Receive Date: 20061227
  Receipt Date: 20060720
  Transmission Date: 20070319
  Serious: Yes (Hospitalization)
  Sender: FDA-Public Use
  Company Number: FR-BAYER-200610681BFR

PATIENT
  Age: 23 Year
  Sex: Female

DRUGS (3)
  1. ACTRON [Suspect]
     Indication: GENERAL SYMPTOM
     Route: 048
     Dates: end: 20060214
  2. RIVOTRIL [Suspect]
     Indication: UNEVALUABLE EVENT
     Route: 048
     Dates: end: 20060214
  3. GYNERGENE CAFEINE [Suspect]
     Indication: MIGRAINE
     Route: 048
     Dates: end: 20060214

REACTIONS (3)
  - DRUG ABUSER [None]
  - DRUG DEPENDENCE [None]
  - HEADACHE [None]
